FAERS Safety Report 4458943-9 (Version None)
Quarter: 2004Q3

REPORT INFORMATION
  Report Type: 
  Country: None (occurrence: None)
  Receive Date: 20040923
  Receipt Date: 20040923
  Transmission Date: 20050211
  Serious: Yes (Other)
  Sender: FDA-Public Use
  Company Number: None

PATIENT
  Age: 41 Year
  Sex: Male
  Weight: 61.6 kg

DRUGS (2)
  1. DAPSONE [Suspect]
     Indication: PNEUMOCYSTIS CARINII PNEUMONIA
     Dosage: 50MG QDAY PO
     Route: 048
     Dates: start: 20040909, end: 20040911
  2. PRIMAQUINE TAB [Suspect]
     Indication: PNEUMOCYSTIS CARINII PNEUMONIA
     Dosage: 52.6 MG QDAY PO
     Route: 048
     Dates: start: 20040909, end: 20040910

REACTIONS (1)
  - ACQUIRED METHAEMOGLOBINAEMIA [None]
